FAERS Safety Report 26094533 (Version 1)
Quarter: 2025Q4

REPORT INFORMATION
  Report Type: Spontaneous
  Country: EU (occurrence: EU)
  Receive Date: 20251126
  Receipt Date: 20251126
  Transmission Date: 20260118
  Serious: Yes (Other)
  Sender: PFIZER
  Company Number: EU-PFIZER INC-PV202500135435

PATIENT
  Age: 39 Year
  Sex: Female

DRUGS (2)
  1. LORLATINIB [Suspect]
     Active Substance: LORLATINIB
     Indication: Lung adenocarcinoma
     Dosage: 100 MG, 1X/DAY
     Dates: start: 202507
  2. LORLATINIB [Suspect]
     Active Substance: LORLATINIB
     Indication: ALK gene rearrangement positive
     Dosage: 75 MG, 1X/DAY

REACTIONS (6)
  - Retinal deposits [Unknown]
  - Hypertriglyceridaemia [Recovered/Resolved]
  - Oedema [Recovered/Resolved]
  - Vitreous opacities [Unknown]
  - Behaviour disorder [Recovered/Resolved]
  - Personality disorder [Recovered/Resolved]

NARRATIVE: CASE EVENT DATE: 20250101
